FAERS Safety Report 20707946 (Version 1)
Quarter: 2022Q2

REPORT INFORMATION
  Report Type: Spontaneous
  Country: US (occurrence: US)
  Receive Date: 20220414
  Receipt Date: 20220414
  Transmission Date: 20220721
  Serious: No
  Sender: FDA-Public Use
  Company Number: US-Blueprint Medicines Corporation-SP-US-2022-000860

PATIENT
  Sex: Female

DRUGS (1)
  1. AYVAKIT [Suspect]
     Active Substance: AVAPRITINIB
     Indication: Mastocytic leukaemia
     Route: 048
     Dates: start: 20210629

REACTIONS (9)
  - Product dose omission issue [Unknown]
  - Mass [Unknown]
  - Weight decreased [Unknown]
  - Decreased appetite [Unknown]
  - Diplopia [Unknown]
  - Eye pain [Unknown]
  - Ocular discomfort [Unknown]
  - Headache [Unknown]
  - Dizziness [Unknown]
